FAERS Safety Report 20007917 (Version 1)
Quarter: 2021Q4

REPORT INFORMATION
  Report Type: Spontaneous
  Country: CN (occurrence: CN)
  Receive Date: 20211028
  Receipt Date: 20211028
  Transmission Date: 20220303
  Serious: Yes (Other)
  Sender: FDA-Public Use
  Company Number: CN-PFIZER INC-202101409669

PATIENT
  Age: 48 Year
  Sex: Female
  Weight: 62 kg

DRUGS (12)
  1. CELECOXIB [Suspect]
     Active Substance: CELECOXIB
     Indication: Pain
     Dosage: 0.2 G, 2X/DAY
     Route: 048
     Dates: start: 20210930, end: 20210930
  2. CELECOXIB [Suspect]
     Active Substance: CELECOXIB
     Indication: Migraine
  3. CELECOXIB [Suspect]
     Active Substance: CELECOXIB
     Indication: Neuralgia
  4. PREGABALIN [Suspect]
     Active Substance: PREGABALIN
     Indication: Migraine
     Dosage: 75 MG, 2X/DAY
     Route: 048
     Dates: start: 20210930
  5. PREGABALIN [Suspect]
     Active Substance: PREGABALIN
     Indication: Pain
  6. PREGABALIN [Suspect]
     Active Substance: PREGABALIN
     Indication: Neuralgia
  7. PANTOPRAZOLE [Suspect]
     Active Substance: PANTOPRAZOLE
     Indication: Pain
     Dosage: 40 MG, 2X/DAY
     Route: 048
     Dates: start: 20210930
  8. PANTOPRAZOLE [Suspect]
     Active Substance: PANTOPRAZOLE
     Indication: Migraine
  9. PANTOPRAZOLE [Suspect]
     Active Substance: PANTOPRAZOLE
     Indication: Neuralgia
  10. IDEBENONE [Suspect]
     Active Substance: IDEBENONE
     Indication: Migraine
     Dosage: 30 MG, 2X/DAY
     Route: 048
     Dates: start: 20210930
  11. IDEBENONE [Suspect]
     Active Substance: IDEBENONE
     Indication: Pain
  12. IDEBENONE [Suspect]
     Active Substance: IDEBENONE
     Indication: Neuralgia

REACTIONS (5)
  - Oedema [Recovering/Resolving]
  - Face oedema [Recovering/Resolving]
  - Generalised oedema [Recovering/Resolving]
  - Asthenia [Recovering/Resolving]
  - Dizziness [Recovering/Resolving]

NARRATIVE: CASE EVENT DATE: 20210930
